FAERS Safety Report 8092104-X (Version None)
Quarter: 2012Q1

REPORT INFORMATION
  Report Type: 
  Country: None (occurrence: None)
  Receive Date: 20120131
  Receipt Date: 20120123
  Transmission Date: 20120608
  Serious: Yes (Other)
  Sender: FDA-Public Use
  Company Number: US-BAYER-2012-007459

PATIENT
  Age: 31 Year
  Sex: Female

DRUGS (4)
  1. YASMIN [Suspect]
     Dosage: UNK
     Route: 048
     Dates: start: 20050101, end: 20091201
  2. YAZ [Suspect]
     Dosage: UNK
     Route: 048
     Dates: start: 20050101, end: 20091201
  3. YAZ [Suspect]
     Dosage: UNK
     Route: 048
     Dates: start: 20040101, end: 20091201
  4. YASMIN [Suspect]
     Dosage: UNK
     Route: 048
     Dates: start: 20040101, end: 20091201

REACTIONS (2)
  - INJURY [None]
  - CHOLECYSTECTOMY [None]
